FAERS Safety Report 5269887-7 (Version None)
Quarter: 2007Q1

REPORT INFORMATION
  Report Type: 
  Country: None (occurrence: None)
  Receive Date: 20070320
  Receipt Date: 20070309
  Transmission Date: 20070707
  Serious: Yes (Life-Threatening)
  Sender: FDA-Public Use
  Company Number: IT-GLAXOSMITHKLINE-B0462234A

PATIENT
  Age: 23 Year
  Sex: Male

DRUGS (1)
  1. CLAVULIN [Suspect]
     Indication: URINARY TRACT INFECTION
     Route: 048
     Dates: start: 20070301, end: 20070301

REACTIONS (1)
  - CARDIAC ARREST [None]
